FAERS Safety Report 25755011 (Version 2)
Quarter: 2025Q4

REPORT INFORMATION
  Report Type: Report from Study
  Country: US (occurrence: US)
  Receive Date: 20250903
  Receipt Date: 20251112
  Transmission Date: 20260117
  Serious: Yes (Other)
  Sender: BIOGEN
  Company Number: US-BIOGEN-2025BI01322400

PATIENT
  Age: 38 Year
  Sex: Female

DRUGS (1)
  1. ZURZUVAE [Suspect]
     Active Substance: ZURANOLONE
     Indication: Perinatal depression
     Dosage: DOSAGE TEXT:TAKE 2 CAPSULES (50 MG) ONCE A DAY AT NIGHT FOR 14 DAYS. MAX DAILY AMOUNT : 50 MG

REACTIONS (2)
  - Major depression [Unknown]
  - Perinatal depression [Unknown]
